FAERS Safety Report 26093586 (Version 1)
Quarter: 2025Q4

REPORT INFORMATION
  Report Type: Spontaneous
  Country: US (occurrence: US)
  Receive Date: 20251126
  Receipt Date: 20251126
  Transmission Date: 20260118
  Serious: Yes (Other)
  Sender: BAYER HEALTHCARE LLC
  Company Number: US-BAYER-2025A155888

PATIENT
  Sex: Female

DRUGS (1)
  1. TINACTIN [Suspect]
     Active Substance: TOLNAFTATE

REACTIONS (1)
  - Mesothelioma [None]
